FAERS Safety Report 12582983 (Version 9)
Quarter: 2019Q3

REPORT INFORMATION
  Report Type: Report from Study
  Country: US (occurrence: US)
  Receive Date: 20160722
  Receipt Date: 20190723
  Transmission Date: 20191004
  Serious: Yes (Hospitalization)
  Sender: FDA-Public Use
  Company Number: PHHY2016US090526

PATIENT
  Age: 34 Year
  Sex: Female
  Weight: 83.9 kg

DRUGS (2)
  1. HYDROMORPHONE [Concomitant]
     Active Substance: HYDROMORPHONE
     Indication: PAIN
     Dosage: UNK
     Route: 065
     Dates: start: 20190605, end: 20190605
  2. GILENYA [Suspect]
     Active Substance: FINGOLIMOD HYDROCHLORIDE
     Indication: MULTIPLE SCLEROSIS
     Dosage: 0.5 MG, QD
     Route: 048
     Dates: start: 20150731

REACTIONS (18)
  - Arthralgia [Recovering/Resolving]
  - Aphasia [Recovering/Resolving]
  - Multiple sclerosis relapse [Recovering/Resolving]
  - Alanine aminotransferase increased [Unknown]
  - Fatigue [Not Recovered/Not Resolved]
  - Urinary hesitation [Recovering/Resolving]
  - Blood alkaline phosphatase increased [Unknown]
  - Asthenia [Unknown]
  - Hypoaesthesia [Recovering/Resolving]
  - Sinus bradycardia [Recovered/Resolved]
  - Stress [Unknown]
  - Chest pain [Recovered/Resolved]
  - Headache [Recovering/Resolving]
  - Fibromyalgia [Unknown]
  - Joint swelling [Recovering/Resolving]
  - Mononucleosis syndrome [Unknown]
  - Paraesthesia [Recovering/Resolving]
  - Confusional state [Recovering/Resolving]

NARRATIVE: CASE EVENT DATE: 20150731
